FAERS Safety Report 7233658-2 (Version None)
Quarter: 2011Q1

REPORT INFORMATION
  Report Type: 
  Country: None (occurrence: None)
  Receive Date: 20110119
  Receipt Date: 20100112
  Transmission Date: 20110831
  Serious: Yes (Hospitalization, Other)
  Sender: FDA-Public Use
  Company Number: US-TEVA-220613USA

PATIENT
  Sex: Female

DRUGS (1)
  1. COPAXONE [Suspect]
     Route: 058

REACTIONS (13)
  - AMNESIA [None]
  - DISORIENTATION [None]
  - BRADYPHRENIA [None]
  - CONFUSIONAL STATE [None]
  - APHASIA [None]
  - PARANOIA [None]
  - PSYCHOTIC DISORDER [None]
  - MENTAL IMPAIRMENT [None]
  - ANXIETY [None]
  - GAIT DISTURBANCE [None]
  - THINKING ABNORMAL [None]
  - MULTIPLE SCLEROSIS RELAPSE [None]
  - INSOMNIA [None]
